FAERS Safety Report 10391897 (Version 6)
Quarter: 2015Q2

REPORT INFORMATION
  Report Type: Spontaneous
  Country: JP (occurrence: JP)
  Receive Date: 20140819
  Receipt Date: 20150520
  Transmission Date: 20150821
  Serious: Yes (Other)
  Sender: FDA-Public Use
  Company Number: PHHY2014JP101290

PATIENT
  Age: 49 Year
  Sex: Female

DRUGS (10)
  1. AREDIA [Suspect]
     Active Substance: PAMIDRONATE DISODIUM
     Indication: METASTASES TO BONE
     Dosage: 90 MG, UNK
     Route: 041
     Dates: start: 200101, end: 2006
  2. CYCLOPHOSPHAMIDE. [Suspect]
     Active Substance: CYCLOPHOSPHAMIDE
     Indication: METASTASES TO BONE
     Route: 065
  3. CALCIUM [Concomitant]
     Active Substance: CALCIUM
     Indication: PRODUCT USED FOR UNKNOWN INDICATION
     Route: 065
  4. ZOMETA [Suspect]
     Active Substance: ZOLEDRONIC ACID
     Indication: METASTASES TO BONE
     Dosage: 4 MG/100 ML
     Route: 041
     Dates: start: 2006, end: 201401
  5. TRASTUZUMAB [Suspect]
     Active Substance: TRASTUZUMAB
     Indication: METASTASES TO BONE
     Route: 065
  6. DOXORUBICIN [Suspect]
     Active Substance: DOXORUBICIN
     Indication: METASTASES TO BONE
     Route: 065
  7. FLUOROURACIL. [Suspect]
     Active Substance: FLUOROURACIL
     Indication: METASTASES TO BONE
     Route: 065
  8. AROMASIN [Concomitant]
     Active Substance: EXEMESTANE
     Indication: PRODUCT USED FOR UNKNOWN INDICATION
     Dosage: 25 MG, UNK
     Route: 048
  9. DOCETAXEL INTRAVENOUS INFUSION 20MG/2ML [Suspect]
     Active Substance: DOCETAXEL
     Indication: METASTASES TO BONE
     Route: 065
  10. UFT [Suspect]
     Active Substance: TEGAFUR\URACIL
     Indication: METASTASES TO BONE
     Route: 065

REACTIONS (10)
  - Malignant neoplasm progression [Recovering/Resolving]
  - Infection [Not Recovered/Not Resolved]
  - Fistula [Unknown]
  - Feeding disorder [Unknown]
  - Exposed bone in jaw [Unknown]
  - Renal impairment [Not Recovered/Not Resolved]
  - Osteonecrosis of jaw [Not Recovered/Not Resolved]
  - Metastases to bone [Recovering/Resolving]
  - Pain in jaw [Unknown]
  - Osteomyelitis [Not Recovered/Not Resolved]

NARRATIVE: CASE EVENT DATE: 201109
